FAERS Safety Report 5526488-0 (Version None)
Quarter: 2007Q4

REPORT INFORMATION
  Report Type: 
  Country: None (occurrence: None)
  Receive Date: 20071121
  Receipt Date: 20071121
  Transmission Date: 20080405
  Serious: Yes (Other)
  Sender: FDA-Public Use
  Company Number: None

PATIENT
  Age: 38 Year
  Sex: Female
  Weight: 56.6996 kg

DRUGS (2)
  1. ADVAIR DISKUS 250/50 [Suspect]
     Indication: ASTHMA PROPHYLAXIS
     Dosage: 1 PUFF TWICE DAILY  INHAL
     Route: 055
     Dates: start: 20061226, end: 20070219
  2. ADVAIR DISKUS 500/50 [Suspect]
     Indication: ASTHMA PROPHYLAXIS
     Dosage: 1 PUFF TWICE DAILY INHAL
     Route: 055
     Dates: start: 20070219, end: 20070303

REACTIONS (3)
  - ASTHMA [None]
  - CHRONIC OBSTRUCTIVE PULMONARY DISEASE [None]
  - NO THERAPEUTIC RESPONSE [None]
